FAERS Safety Report 25151948 (Version 2)
Quarter: 2025Q2

REPORT INFORMATION
  Report Type: Spontaneous
  Country: US (occurrence: US)
  Receive Date: 20250402
  Receipt Date: 20250409
  Transmission Date: 20250717
  Serious: Yes (Hospitalization, Other)
  Sender: ROCHE
  Company Number: US-ROCHE-10000244981

PATIENT
  Age: 61 Year
  Sex: Female

DRUGS (1)
  1. TNKASE [Suspect]
     Active Substance: TENECTEPLASE
     Indication: Ischaemic stroke
     Route: 042
     Dates: start: 20250325, end: 20250325

REACTIONS (5)
  - Cerebral artery occlusion [Recovered/Resolved]
  - Carotid artery occlusion [Recovered/Resolved]
  - NIH stroke scale score increased [Recovered/Resolved]
  - Angioedema [Unknown]
  - Puncture site haemorrhage [Unknown]

NARRATIVE: CASE EVENT DATE: 20250325
